FAERS Safety Report 6345528-2 (Version None)
Quarter: 2009Q3

REPORT INFORMATION
  Report Type: 
  Country: None (occurrence: None)
  Receive Date: 20090909
  Receipt Date: 20090908
  Transmission Date: 20100115
  Serious: Yes (Hospitalization)
  Sender: FDA-Public Use
  Company Number: DK-BRISTOL-MYERS SQUIBB COMPANY-14769269

PATIENT
  Age: 43 Year
  Sex: Male

DRUGS (11)
  1. ETOPOSIDE [Suspect]
     Indication: LYMPHOMA
     Dates: start: 20080201
  2. BLEOMYCIN SULFATE [Suspect]
     Indication: LYMPHOMA
     Dates: start: 20080201
  3. CISPLATIN [Suspect]
     Indication: LYMPHOMA
     Dates: start: 20080201
  4. NEUPOGEN [Suspect]
     Indication: LYMPHOMA
     Dates: start: 20080201
  5. NEULASTA [Suspect]
     Indication: LYMPHOMA
     Dates: start: 20080201
  6. ZOFRAN [Suspect]
     Indication: LYMPHOMA
     Dates: start: 20080201
  7. PREDNISOLONE [Suspect]
     Indication: LYMPHOMA
     Dates: start: 20080201
  8. EMEND [Suspect]
     Indication: LYMPHOMA
     Dates: start: 20080201
  9. EMPERAL [Suspect]
     Indication: LYMPHOMA
     Dates: start: 20080201
  10. VOGALENE [Suspect]
     Indication: LYMPHOMA
     Dates: start: 20080201
  11. IMODIUM [Suspect]
     Indication: LYMPHOMA
     Dates: start: 20080201

REACTIONS (10)
  - CHILLS [None]
  - MALAISE [None]
  - MYALGIA [None]
  - PERIPHERAL COLDNESS [None]
  - PULMONARY FUNCTION TEST DECREASED [None]
  - PYREXIA [None]
  - RAYNAUD'S PHENOMENON [None]
  - SENSORY LOSS [None]
  - TINNITUS [None]
  - VERTIGO [None]
